FAERS Safety Report 7063300-5 (Version None)
Quarter: 2010Q4

REPORT INFORMATION
  Report Type: 
  Country: None (occurrence: None)
  Receive Date: 20101026
  Receipt Date: 20100706
  Transmission Date: 20110411
  Serious: No
  Sender: FDA-Public Use
  Company Number: US-PFIZER INC-2010084485

PATIENT
  Sex: Female

DRUGS (2)
  1. LIPITOR [Suspect]
     Indication: BLOOD CHOLESTEROL
     Dosage: 20 MG, DAILY
     Route: 048
     Dates: end: 20100101
  2. NEXIUM [Concomitant]
     Dosage: 40 MG, DAILY
     Route: 048
     Dates: start: 20060401

REACTIONS (1)
  - MYALGIA [None]
